FAERS Safety Report 19780516 (Version 1)
Quarter: 2021Q3

REPORT INFORMATION
  Report Type: Spontaneous
  Country: FR (occurrence: FR)
  Receive Date: 20210902
  Receipt Date: 20210902
  Transmission Date: 20211014
  Serious: Yes (Other)
  Sender: FDA-Public Use
  Company Number: FR-US-PROVELL PHARMACEUTICALS LLC-9260066

PATIENT
  Sex: Female

DRUGS (1)
  1. LEVOTHYROX 100 [Suspect]
     Active Substance: LEVOTHYROXINE SODIUM
     Indication: PRODUCT USED FOR UNKNOWN INDICATION
     Dosage: 100

REACTIONS (14)
  - Fatigue [Unknown]
  - Tendon rupture [Unknown]
  - Gait disturbance [Recovering/Resolving]
  - Dizziness [Unknown]
  - Fall [Unknown]
  - Syncope [Unknown]
  - Skin discolouration [Unknown]
  - Product packaging issue [Unknown]
  - Headache [Unknown]
  - Somnolence [Unknown]
  - Visual impairment [Unknown]
  - Ill-defined disorder [Unknown]
  - Arthralgia [Unknown]
  - Wrist fracture [Recovering/Resolving]
